FAERS Safety Report 9255388 (Version 1)
Quarter: 2013Q2

REPORT INFORMATION
  Report Type: Spontaneous
  Country: US (occurrence: US)
  Receive Date: 20130425
  Receipt Date: 20130425
  Transmission Date: 20140414
  Serious: No
  Sender: FDA-Public Use
  Company Number: US-BRISTOL-MYERS SQUIBB COMPANY-16506883

PATIENT
  Age: 85 Year
  Sex: Male
  Weight: 63.04 kg

DRUGS (1)
  1. HYDREA CAPS 500 MG [Suspect]
     Indication: POLYCYTHAEMIA VERA
     Dosage: TOOK 5 CAPSULES ON 5APR12 MORNING. STARTED IN AUG11. 500MG (M,W+FR) AND 2 CAPS (TU, THU,SAT+SUN).
     Dates: start: 20120405

REACTIONS (2)
  - Incorrect drug dosage form administered [Unknown]
  - Overdose [Unknown]
